FAERS Safety Report 11679639 (Version 2)
Quarter: 2015Q4

REPORT INFORMATION
  Report Type: Spontaneous
  Country: US (occurrence: US)
  Receive Date: 20151027
  Receipt Date: 20151104
  Transmission Date: 20160304
  Serious: No
  Sender: FDA-Public Use
  Company Number: US-ELI_LILLY_AND_COMPANY-US201003001882

PATIENT
  Age: 69 Year
  Sex: Female

DRUGS (13)
  1. RECLAST [Concomitant]
     Active Substance: ZOLEDRONIC ACID
     Route: 065
  2. FORTEO [Suspect]
     Active Substance: TERIPARATIDE
     Indication: OSTEOPOROSIS
     Dosage: 20 UG, DAILY (1/D)
     Route: 065
     Dates: start: 200907
  3. FORTEO [Suspect]
     Active Substance: TERIPARATIDE
     Dosage: 20 UG, QD
  4. CALCIUM [Concomitant]
     Active Substance: CALCIUM
     Dosage: UNK, UNKNOWN
     Route: 065
  5. FORTEO [Suspect]
     Active Substance: TERIPARATIDE
     Dosage: 20 UG, DAILY (1/D)
     Route: 065
  6. VICODIN [Concomitant]
     Active Substance: ACETAMINOPHEN\HYDROCODONE BITARTRATE
  7. FORTEO [Suspect]
     Active Substance: TERIPARATIDE
     Dosage: 20 UG, QOD
     Route: 065
     Dates: start: 20100415
  8. PREDNISOLONE. [Concomitant]
     Active Substance: PREDNISOLONE
  9. FORTEO [Suspect]
     Active Substance: TERIPARATIDE
     Dosage: 20 UG, DAILY (1/D)
     Route: 065
  10. DIOVAN [Concomitant]
     Active Substance: VALSARTAN
  11. FORTEO [Suspect]
     Active Substance: TERIPARATIDE
     Dosage: 20 UG, DAILY (1/D)
     Route: 065
  12. CALCIUM [Concomitant]
     Active Substance: CALCIUM
     Dosage: UNK, UNKNOWN
     Route: 065
  13. VITAMINS [Concomitant]
     Active Substance: VITAMINS

REACTIONS (14)
  - Bone density abnormal [Unknown]
  - Pain [Not Recovered/Not Resolved]
  - Blood calcium increased [Unknown]
  - Joint dislocation [Recovering/Resolving]
  - Viral infection [Recovered/Resolved]
  - Constipation [Not Recovered/Not Resolved]
  - Off label use [Recovered/Resolved]
  - Muscle spasms [Recovered/Resolved]
  - Injection site bruising [Recovered/Resolved]
  - Urinary tract infection [Recovered/Resolved]
  - Urinary tract infection [Unknown]
  - Bone density abnormal [Unknown]
  - Haemoglobin decreased [Recovered/Resolved]
  - Muscle spasms [Not Recovered/Not Resolved]

NARRATIVE: CASE EVENT DATE: 200910
